FAERS Safety Report 6974883-5 (Version None)
Quarter: 2010Q3

REPORT INFORMATION
  Report Type: 
  Country: None (occurrence: None)
  Receive Date: 20100909
  Receipt Date: 20090105
  Transmission Date: 20110219
  Serious: No
  Sender: FDA-Public Use
  Company Number: US-WYE-H07538809

PATIENT
  Sex: Female
  Weight: 47.22 kg

DRUGS (3)
  1. PRISTIQ [Suspect]
     Indication: ANXIETY
     Route: 048
     Dates: start: 20090102
  2. AMBIEN [Concomitant]
  3. XANAX [Concomitant]

REACTIONS (5)
  - BRUXISM [None]
  - HEADACHE [None]
  - LIBIDO DECREASED [None]
  - MUSCLE TIGHTNESS [None]
  - NERVOUSNESS [None]
